FAERS Safety Report 6299866-2 (Version None)
Quarter: 2009Q3

REPORT INFORMATION
  Report Type: 
  Country: None (occurrence: None)
  Receive Date: 20090804
  Receipt Date: 20090728
  Transmission Date: 20100115
  Serious: Yes (Hospitalization)
  Sender: FDA-Public Use
  Company Number: 2009US001902

PATIENT
  Age: 70 Year
  Sex: Female
  Weight: 104.3 kg

DRUGS (10)
  1. AMEVIVE [Suspect]
     Indication: PSORIASIS
     Dosage: 15 MG, WEKLY, INTRAMUSCULAR
     Route: 030
     Dates: start: 20050208, end: 20050427
  2. CORTISONE (CORTISONE) [Concomitant]
  3. ZESTRIL [Concomitant]
  4. NORVASC [Concomitant]
  5. TOPROL-XL [Concomitant]
  6. SYNTHROID [Concomitant]
  7. FLUDROCORTISONE ACETATE [Concomitant]
  8. ZOLOFT [Concomitant]
  9. OMEPRAZOLE [Concomitant]
  10. TYLENOL (CAPLET) [Concomitant]

REACTIONS (1)
  - CLOSTRIDIUM DIFFICILE COLITIS [None]
